FAERS Safety Report 11495159 (Version 1)
Quarter: 2015Q3

REPORT INFORMATION
  Report Type: Spontaneous
  Country: JP (occurrence: JP)
  Receive Date: 20150911
  Receipt Date: 20150911
  Transmission Date: 20151125
  Serious: Yes (Other)
  Sender: FDA-Public Use
  Company Number: JP-TEVA-2015-JP-001698J

PATIENT
  Age: 79 Year
  Sex: Male

DRUGS (1)
  1. PRINK INJECTION 5MICROG [Suspect]
     Active Substance: ALPROSTADIL
     Indication: PRODUCT USED FOR UNKNOWN INDICATION
     Route: 042
     Dates: start: 201508

REACTIONS (3)
  - Paralysis [Unknown]
  - Vasculitis [Unknown]
  - Angioedema [Unknown]
